FAERS Safety Report 22746037 (Version 2)
Quarter: 2024Q3

REPORT INFORMATION
  Report Type: Report from Study
  Country: GB (occurrence: GB)
  Receive Date: 20230725
  Receipt Date: 20240724
  Transmission Date: 20241017
  Serious: No
  Sender: ROCHE
  Company Number: GB-ROCHE-3392931

PATIENT
  Age: 44 Year
  Sex: Male

DRUGS (2)
  1. OCREVUS [Suspect]
     Active Substance: OCRELIZUMAB
     Indication: Primary progressive multiple sclerosis
     Route: 065
  2. OCREVUS [Suspect]
     Active Substance: OCRELIZUMAB
     Route: 065

REACTIONS (4)
  - COVID-19 [Recovered/Resolved]
  - Muscular weakness [Recovered/Resolved]
  - Asthenia [Not Recovered/Not Resolved]
  - Multiple sclerosis [Unknown]

NARRATIVE: CASE EVENT DATE: 20230316
